FAERS Safety Report 5925745-3 (Version None)
Quarter: 2008Q4

REPORT INFORMATION
  Report Type: 
  Country: None (occurrence: None)
  Receive Date: 20081021
  Receipt Date: 20081010
  Transmission Date: 20090506
  Serious: Yes (Hospitalization, Other)
  Sender: FDA-Public Use
  Company Number: US-ROCHE-569311

PATIENT
  Sex: Female

DRUGS (6)
  1. PEGASYS [Suspect]
     Dosage: FORM: PRE-FILLED SYRINGE, BREIFLY SUSPENDED
     Route: 058
     Dates: start: 20080420
  2. PEGASYS [Suspect]
     Dosage: FORM: PRE-FILLED SYRINGE
     Route: 058
     Dates: start: 20080701
  3. RIBAVIRIN [Suspect]
     Dosage: DOSE: 600MG IN AM AND 600 MG IN PM
     Route: 048
     Dates: start: 20080420
  4. RIBAVIRIN [Suspect]
     Route: 048
     Dates: start: 20080701
  5. LITHIUM [Suspect]
     Indication: DRUG USE FOR UNKNOWN INDICATION
     Route: 042
  6. VITAMINE D [Concomitant]

REACTIONS (7)
  - BIPOLAR DISORDER [None]
  - CONVULSION [None]
  - DEHYDRATION [None]
  - DIARRHOEA [None]
  - INFLUENZA LIKE ILLNESS [None]
  - PNEUMONIA [None]
  - VOMITING [None]
